FAERS Safety Report 12432834 (Version 1)
Quarter: 2016Q2

REPORT INFORMATION
  Report Type: Spontaneous
  Country: US (occurrence: None)
  Receive Date: 20160602
  Receipt Date: 20160602
  Transmission Date: 20160815
  Serious: Yes (Death)
  Sender: FDA-Public Use
  Company Number: None

PATIENT
  Age: 88 Year
  Sex: Male

DRUGS (2)
  1. DABIGATRAN, 150 MG [Suspect]
     Active Substance: DABIGATRAN
     Indication: ATRIAL FIBRILLATION
     Route: 048
     Dates: start: 20150801, end: 20151219
  2. ASPIRIN, 325 MG [Suspect]
     Active Substance: ASPIRIN
     Route: 048

REACTIONS (3)
  - Gastrointestinal haemorrhage [None]
  - Haemorrhage [None]
  - Blood creatinine abnormal [None]

NARRATIVE: CASE EVENT DATE: 20151219
